FAERS Safety Report 7930717-3 (Version None)
Quarter: 2011Q4

REPORT INFORMATION
  Report Type: 
  Country: None (occurrence: None)
  Receive Date: 20111117
  Receipt Date: 20111102
  Transmission Date: 20120403
  Serious: Yes (Other)
  Sender: FDA-Public Use
  Company Number: 2011MA016181

PATIENT
  Age: 47 Year
  Sex: Female

DRUGS (1)
  1. IBUPROFEN [Suspect]
     Indication: TOOTH EXTRACTION
     Dosage: 200 MG;PRN;PO
     Route: 048
     Dates: start: 20110426, end: 20111029

REACTIONS (9)
  - ABNORMAL SENSATION IN EYE [None]
  - PAIN IN EXTREMITY [None]
  - VOMITING [None]
  - ABDOMINAL PAIN UPPER [None]
  - RENAL PAIN [None]
  - PRURITUS [None]
  - DIZZINESS [None]
  - BLOOD PRESSURE INCREASED [None]
  - COUGH [None]
